FAERS Safety Report 13787575 (Version 1)
Quarter: 2017Q3

REPORT INFORMATION
  Report Type: Spontaneous
  Country: US (occurrence: US)
  Receive Date: 20170725
  Receipt Date: 20170725
  Transmission Date: 20171127
  Serious: No
  Sender: FDA-Public Use
  Company Number: US-JNJFOC-20170709131

PATIENT
  Sex: Female

DRUGS (1)
  1. TYLENOL EXTRA STRENGTH [Suspect]
     Active Substance: ACETAMINOPHEN
     Indication: PAIN IN EXTREMITY
     Dosage: 1-2 GELCAPS EVERY 3-4 HOURS
     Route: 048
     Dates: start: 2017

REACTIONS (7)
  - Diarrhoea [Recovered/Resolved]
  - Bedridden [Not Recovered/Not Resolved]
  - Wrong drug administered [Unknown]
  - Malaise [Not Recovered/Not Resolved]
  - Incorrect dose administered [Unknown]
  - Product label issue [Unknown]
  - Inappropriate schedule of drug administration [Unknown]

NARRATIVE: CASE EVENT DATE: 2017
